FAERS Safety Report 4521834-9 (Version None)
Quarter: 2004Q4

REPORT INFORMATION
  Report Type: 
  Country: None (occurrence: None)
  Receive Date: 20041209
  Receipt Date: 20041201
  Transmission Date: 20050328
  Serious: Yes (Hospitalization)
  Sender: FDA-Public Use
  Company Number: US-JNJFOC-20041201291

PATIENT
  Sex: Female

DRUGS (1)
  1. DITROPAN [Suspect]
     Indication: UNEVALUABLE EVENT
     Route: 049

REACTIONS (1)
  - ANAPHYLACTIC REACTION [None]
